FAERS Safety Report 6330987-1 (Version None)
Quarter: 2009Q3

REPORT INFORMATION
  Report Type: 
  Country: None (occurrence: None)
  Receive Date: 20090827
  Receipt Date: 20090820
  Transmission Date: 20100115
  Serious: Yes (Hospitalization, Other)
  Sender: FDA-Public Use
  Company Number: US-ELI_LILLY_AND_COMPANY-US200907006896

PATIENT
  Sex: Female

DRUGS (24)
  1. HUMALOG [Suspect]
     Dosage: UNK, 3/D
     Dates: start: 20090101
  2. HUMALOG [Suspect]
     Dosage: UNK, 3/D
     Dates: start: 20070101
  3. LANTUS [Concomitant]
     Dosage: UNK, UNK
     Dates: start: 20040101
  4. ALBUTEROL [Concomitant]
     Dosage: UNK, AS NEEDED
  5. BUSPAR [Concomitant]
     Dosage: 15 MG, 2/D
     Route: 048
  6. CYANOCOBALAMIN [Concomitant]
     Dosage: 1000 UG, DAILY (1/D)
     Route: 048
  7. GABAPENTIN [Concomitant]
     Dosage: 800 MG, 3/D
     Route: 048
  8. IMDUR [Concomitant]
     Dosage: 30 MG, DAILY (1/D)
     Route: 048
  9. LISINOPRIL [Concomitant]
     Dosage: 20 MG, 2/D
     Route: 048
  10. LOVASTATIN [Concomitant]
     Dosage: 80 MG, EACH EVENING
     Route: 048
  11. METFORMIN HCL [Concomitant]
     Dosage: 1000 MG, 2/D
     Route: 048
  12. TOPROL-XL [Concomitant]
     Dosage: 100 MG, 2/D
  13. MULTI-VITAMIN [Concomitant]
     Dosage: UNK, DAILY (1/D)
     Route: 048
  14. NYSTATIN [Concomitant]
     Dosage: UNK, 3/D
     Route: 061
  15. PANTOPRAZOLE SODIUM [Concomitant]
     Dosage: 40 MG, DAILY (1/D)
     Route: 048
  16. PAROXETINE HCL [Concomitant]
     Dosage: 30 MG, DAILY (1/D)
     Route: 048
  17. PRIMIDONE [Concomitant]
     Dosage: 100 MG, EACH EVENING
  18. PRIMIDONE [Concomitant]
     Dosage: 50 MG, EACH MORNING
  19. PRIMIDONE [Concomitant]
     Dosage: 50 MG, DAILY (1/D)
  20. NITROGLYCERIN [Concomitant]
     Dosage: 0.4 MG, AS NEEDED
     Route: 060
  21. NITROGLYCERIN [Concomitant]
     Dosage: 0.4 MG, AS NEEDED
     Route: 061
  22. ASPIRIN [Concomitant]
     Dosage: 325 MG, DAILY (1/D)
  23. ACETAMINOPHEN [Concomitant]
     Dosage: 500 MG, AS NEEDED
     Route: 048
  24. GLUCAGON [Concomitant]
     Dosage: UNK, AS NEEDED

REACTIONS (41)
  - ABDOMINAL PAIN [None]
  - ANAEMIA [None]
  - ANXIETY DISORDER [None]
  - ATRIAL FIBRILLATION [None]
  - BLOOD GLUCOSE INCREASED [None]
  - BRONCHIOLITIS [None]
  - CATARACT [None]
  - CEREBRAL HAEMORRHAGE [None]
  - CEREBROVASCULAR ACCIDENT [None]
  - CHEST DISCOMFORT [None]
  - CONFUSIONAL STATE [None]
  - CONVULSION [None]
  - DIABETIC NEUROPATHY [None]
  - DYSLIPIDAEMIA [None]
  - DYSPEPSIA [None]
  - DYSPHAGIA [None]
  - DYSPNOEA [None]
  - ESSENTIAL TREMOR [None]
  - FALL [None]
  - GASTROOESOPHAGEAL REFLUX DISEASE [None]
  - HEADACHE [None]
  - HYPERLIPIDAEMIA [None]
  - HYPERTENSION [None]
  - HYPERTENSIVE EMERGENCY [None]
  - HYPOAESTHESIA [None]
  - HYPOAESTHESIA FACIAL [None]
  - JOINT SPRAIN [None]
  - LEUKOPENIA [None]
  - LOSS OF CONSCIOUSNESS [None]
  - LUNG DISORDER [None]
  - MAJOR DEPRESSION [None]
  - MEMORY IMPAIRMENT [None]
  - MYOCARDIAL INFARCTION [None]
  - NASOPHARYNGITIS [None]
  - OSTEOARTHRITIS [None]
  - SEASONAL ALLERGY [None]
  - SPEECH DISORDER [None]
  - SUBDURAL HAEMATOMA [None]
  - SYNCOPE [None]
  - THROMBOSIS [None]
  - VISUAL IMPAIRMENT [None]
